FAERS Safety Report 18612536 (Version 1)
Quarter: 2020Q4

REPORT INFORMATION
  Report Type: Report from Study
  Country: US (occurrence: US)
  Receive Date: 20201214
  Receipt Date: 20201214
  Transmission Date: 20210114
  Serious: Yes (Other)
  Sender: FDA-Public Use
  Company Number: US-MYLANLABS-2020M1088628

PATIENT
  Sex: Female
  Weight: 50.8 kg

DRUGS (1)
  1. DIMETHYL FUMARATE [Suspect]
     Active Substance: DIMETHYL FUMARATE
     Indication: MULTIPLE SCLEROSIS
     Dosage: 240 MILLIGRAM, BID
     Dates: start: 202009, end: 202010

REACTIONS (5)
  - Pruritus [Unknown]
  - Flushing [Unknown]
  - Erythema [Unknown]
  - Hyperhidrosis [Unknown]
  - Abdominal discomfort [Unknown]
